FAERS Safety Report 5640553-9 (Version None)
Quarter: 2008Q1

REPORT INFORMATION
  Report Type: 
  Country: None (occurrence: None)
  Receive Date: 20080227
  Receipt Date: 20080215
  Transmission Date: 20080703
  Serious: Yes (Other)
  Sender: FDA-Public Use
  Company Number: PHHY2008AU01797

PATIENT
  Sex: Female

DRUGS (1)
  1. FAMVIR [Suspect]
     Indication: ORAL HERPES
     Dosage: 500 MG X 3 STAT
     Route: 048

REACTIONS (3)
  - FALL [None]
  - MULTIPLE FRACTURES [None]
  - MUSCULAR WEAKNESS [None]
